FAERS Safety Report 8975781 (Version 1)
Quarter: 2012Q4

REPORT INFORMATION
  Report Type: 
  Country: JP (occurrence: JP)
  Receive Date: 20121219
  Receipt Date: 20121219
  Transmission Date: 20130627
  Serious: Yes (Death, Hospitalization, Other)
  Sender: FDA-Public Use
  Company Number: JP-ROCHE-1166879

PATIENT
  Age: 81 Year
  Sex: Male

DRUGS (5)
  1. AVASTIN [Suspect]
     Indication: RECTAL CANCER METASTATIC
     Dosage: Dosage is uncertain.
     Route: 041
  2. IRINOTECAN HYDROCHLORIDE [Concomitant]
     Indication: RECTAL CANCER METASTATIC
     Dosage: Dosage is uncertain.
     Route: 041
  3. 5-FU [Concomitant]
     Indication: RECTAL CANCER METASTATIC
     Dosage: Dosage is uncertain.
     Route: 040
  4. 5-FU [Concomitant]
     Indication: RECTAL CANCER METASTATIC
     Dosage: Dosage is uncertain.
     Route: 041
  5. LEVOFOLINATE [Concomitant]
     Indication: RECTAL CANCER METASTATIC
     Dosage: Dosage is uncertain.
     Route: 041

REACTIONS (6)
  - Mesenteric artery thrombosis [Fatal]
  - Portal venous gas [Fatal]
  - Renal infarct [Fatal]
  - Decreased appetite [Recovering/Resolving]
  - Peritonitis [Unknown]
  - Atrial thrombosis [Unknown]
